FAERS Safety Report 10043990 (Version 1)
Quarter: 2014Q1

REPORT INFORMATION
  Report Type: Spontaneous
  Country: US (occurrence: US)
  Receive Date: 20140328
  Receipt Date: 20140328
  Transmission Date: 20141002
  Serious: No
  Sender: FDA-Public Use
  Company Number: US-MYLANLABS-2013S1014294

PATIENT
  Age: 60 Year
  Sex: Female
  Weight: 72.58 kg

DRUGS (4)
  1. EMSAM (SELEGILINE TRANSDERMAL SYSTEM) [Suspect]
     Indication: DEPRESSION
     Dosage: CHANGED QDAY
     Route: 062
     Dates: start: 20130623
  2. LIPITOR [Concomitant]
     Indication: BLOOD CHOLESTEROL
  3. ASPIRIN [Concomitant]
  4. VITAMIN D [Concomitant]

REACTIONS (2)
  - Panic attack [Recovered/Resolved]
  - Headache [Recovered/Resolved]
